FAERS Safety Report 15249225 (Version 1)
Quarter: 2018Q3

REPORT INFORMATION
  Report Type: Spontaneous
  Country: US (occurrence: US)
  Receive Date: 20180807
  Receipt Date: 20180807
  Transmission Date: 20181010
  Serious: No
  Sender: FDA-Public Use
  Company Number: US-PERRIGO-17US025307

PATIENT
  Age: 76 Year
  Sex: Male
  Weight: 86.17 kg

DRUGS (3)
  1. GLEEVEC [Concomitant]
     Active Substance: IMATINIB MESYLATE
     Indication: LEUKAEMIA
     Dosage: UNK
     Route: 065
     Dates: start: 20170201
  2. LORATADINE. [Suspect]
     Active Substance: LORATADINE
     Indication: RASH
     Dosage: 40 MG, QD
     Route: 048
     Dates: start: 201706, end: 201707
  3. LORATADINE. [Suspect]
     Active Substance: LORATADINE
     Dosage: 10 MG, BID
     Route: 048
     Dates: start: 201707

REACTIONS (2)
  - Overdose [Recovered/Resolved]
  - Off label use [Not Recovered/Not Resolved]

NARRATIVE: CASE EVENT DATE: 201706
